FAERS Safety Report 8924333 (Version 3)
Quarter: 2013Q2

REPORT INFORMATION
  Report Type: Spontaneous
  Country: US (occurrence: US)
  Receive Date: 20121126
  Receipt Date: 20130429
  Transmission Date: 20140414
  Serious: Yes (Hospitalization, Disabling, Other)
  Sender: FDA-Public Use
  Company Number: US-009507513-2010SP051431

PATIENT
  Sex: Female
  Weight: 112.95 kg

DRUGS (1)
  1. NUVARING [Suspect]
     Indication: CONTRACEPTION
     Dosage: UNK UNK, QM
     Route: 067
     Dates: start: 2005, end: 2008

REACTIONS (12)
  - Anxiety disorder [Not Recovered/Not Resolved]
  - Pulmonary embolism [Unknown]
  - Asthma [Unknown]
  - Migraine [Unknown]
  - Pain in extremity [Unknown]
  - Dyspnoea exertional [Recovered/Resolved]
  - Hypertension [Recovered/Resolved]
  - Drug ineffective [Unknown]
  - Chest pain [Recovered/Resolved]
  - Hypoaesthesia [Recovered/Resolved]
  - Local swelling [Recovered/Resolved]
  - Somatisation disorder [Not Recovered/Not Resolved]
